FAERS Safety Report 9423331 (Version 1)
Quarter: 2013Q3

REPORT INFORMATION
  Report Type: Report from Study
  Country: BE (occurrence: BE)
  Receive Date: 20130726
  Receipt Date: 20130726
  Transmission Date: 20140515
  Serious: Yes (Hospitalization)
  Sender: FDA-Public Use
  Company Number: BE-ABBOTT-13P-013-1123330-00

PATIENT
  Sex: Female
  Weight: 104 kg

DRUGS (2)
  1. HUMIRA [Suspect]
     Indication: ANKYLOSING SPONDYLITIS
     Dates: start: 20091119, end: 20121115
  2. HUMIRA [Suspect]
     Dates: start: 20121221

REACTIONS (3)
  - Obesity [Recovering/Resolving]
  - Hiatus hernia [Unknown]
  - Gastrooesophageal reflux disease [Unknown]
